FAERS Safety Report 24718021 (Version 2)
Quarter: 2024Q4

REPORT INFORMATION
  Report Type: Spontaneous
  Country: US (occurrence: US)
  Receive Date: 20241210
  Receipt Date: 20241227
  Transmission Date: 20250114
  Serious: Yes (Hospitalization)
  Sender: TEVA
  Company Number: US-TEVA-VS-3272523

PATIENT
  Age: 25 Year
  Sex: Male

DRUGS (1)
  1. PENICILLIN V [Suspect]
     Active Substance: PENICILLIN V
     Indication: Tooth abscess
     Route: 065

REACTIONS (1)
  - Thrombotic microangiopathy [Recovered/Resolved]
